FAERS Safety Report 6420578-6 (Version None)
Quarter: 2009Q4

REPORT INFORMATION
  Report Type: 
  Country: None (occurrence: None)
  Receive Date: 20091027
  Receipt Date: 20090626
  Transmission Date: 20100525
  Serious: Yes (Other)
  Sender: FDA-Public Use
  Company Number: AUR-APL-2009-00923

PATIENT
  Age: 77 Year
  Sex: Female
  Weight: 92.5338 kg

DRUGS (9)
  1. LISINOPRIL [Suspect]
     Indication: HYPERTENSION
     Dosage: 40MG, DAILY
     Dates: start: 19920101, end: 19930101
  2. LIPITOR [Suspect]
     Indication: BLOOD CHOLESTEROL INCREASED
     Dosage: 100MG, DAILY
  3. CALCIUM [Concomitant]
  4. ASCORBIC ACID [Concomitant]
  5. MULTI-VITAMIN [Concomitant]
  6. INSULIN [Concomitant]
  7. OLMESARTAN [Concomitant]
  8. IRON [Concomitant]
  9. VITAMIN B COMPLEX CAP [Concomitant]

REACTIONS (11)
  - ANAEMIA [None]
  - BLINDNESS [None]
  - DIABETIC NEUROPATHY [None]
  - DIZZINESS [None]
  - FEELING ABNORMAL [None]
  - HAEMORRHAGE [None]
  - PAIN IN EXTREMITY [None]
  - RETINAL TEAR [None]
  - ROAD TRAFFIC ACCIDENT [None]
  - THALASSAEMIA [None]
  - VISUAL ACUITY REDUCED [None]
